FAERS Safety Report 6253169-0 (Version None)
Quarter: 2009Q3

REPORT INFORMATION
  Report Type: 
  Country: None (occurrence: None)
  Receive Date: 20090701
  Receipt Date: 20090622
  Transmission Date: 20100115
  Serious: Yes (Hospitalization, Other)
  Sender: FDA-Public Use
  Company Number: US-ABBOTT-09P-163-0581188-00

PATIENT
  Sex: Male

DRUGS (3)
  1. KALETRA [Suspect]
     Indication: HIV INFECTION
     Dosage: 200/50MG FOUR DAILY
     Dates: start: 20060101, end: 20090602
  2. TRUVADA [Suspect]
     Indication: HIV INFECTION
     Dates: end: 20090602
  3. DAPSONE [Concomitant]
     Indication: OPPORTUNISTIC INFECTION

REACTIONS (3)
  - BODY TEMPERATURE DECREASED [None]
  - HYPOVENTILATION [None]
  - RENAL FAILURE [None]
